FAERS Safety Report 13199995 (Version 2)
Quarter: 2017Q1

REPORT INFORMATION
  Report Type: Spontaneous
  Country: UA (occurrence: UA)
  Receive Date: 20170208
  Receipt Date: 20170217
  Transmission Date: 20170428
  Serious: Yes (Death, Other)
  Sender: FDA-Public Use
  Company Number: UA-BIOMARINAP-UA-2017-112768

PATIENT
  Age: 9 Year
  Sex: Female

DRUGS (1)
  1. ALDURAZYME [Suspect]
     Active Substance: LARONIDASE
     Indication: MUCOPOLYSACCHARIDOSIS I
     Dosage: UNK UNK, QW
     Route: 041
     Dates: start: 2010, end: 201612

REACTIONS (5)
  - Disease progression [Fatal]
  - Bronchitis [Unknown]
  - Pneumonia [Fatal]
  - Blindness [Unknown]
  - Brain oedema [Fatal]
